FAERS Safety Report 7349248-7 (Version None)
Quarter: 2011Q1

REPORT INFORMATION
  Report Type: 
  Country: None (occurrence: None)
  Receive Date: 20110314
  Receipt Date: 20110309
  Transmission Date: 20110831
  Serious: Yes (Death, Other)
  Sender: FDA-Public Use
  Company Number: ZA-SANOFI-AVENTIS-2011SA014179

PATIENT
  Age: 70 Year
  Sex: Male

DRUGS (3)
  1. FOLINIC ACID [Concomitant]
  2. ELOXATIN [Suspect]
  3. ELOXATIN [Suspect]

REACTIONS (4)
  - SPLENOMEGALY [None]
  - METASTATIC NEOPLASM [None]
  - THROMBOCYTOPENIA [None]
  - CONFUSIONAL STATE [None]
